FAERS Safety Report 9142605 (Version 1)
Quarter: 2013Q1

REPORT INFORMATION
  Report Type: Spontaneous
  Country: CA (occurrence: CA)
  Receive Date: 20130306
  Receipt Date: 20130306
  Transmission Date: 20140127
  Serious: Yes (Other)
  Sender: FDA-Public Use
  Company Number: CA-JNJFOC-20130300423

PATIENT
  Sex: Male

DRUGS (1)
  1. TRAMACET [Suspect]
     Indication: PAIN
     Dosage: 4 TABLETS/ DAY, SINCE 2 YEARS
     Route: 065

REACTIONS (1)
  - Urinary tract infection [Unknown]
